FAERS Safety Report 15216741 (Version 1)
Quarter: 2018Q3

REPORT INFORMATION
  Report Type: Report from Study
  Country: US (occurrence: US)
  Receive Date: 20180730
  Receipt Date: 20180730
  Transmission Date: 20181010
  Serious: Yes (Death, Other)
  Sender: FDA-Public Use
  Company Number: US-GILEAD-2018-0351495

PATIENT
  Age: 65 Year
  Sex: Female

DRUGS (21)
  1. ALLOPURINOL. [Concomitant]
     Active Substance: ALLOPURINOL
  2. BUMETANIDE. [Concomitant]
     Active Substance: BUMETANIDE
  3. GLUCOSAMINE + CHONDROITIN          /01430901/ [Concomitant]
  4. IRON [Concomitant]
     Active Substance: IRON
  5. LOVASTATIN. [Concomitant]
     Active Substance: LOVASTATIN
  6. SERTRALINE [Concomitant]
     Active Substance: SERTRALINE HYDROCHLORIDE
  7. ZOLOFT [Concomitant]
     Active Substance: SERTRALINE HYDROCHLORIDE
  8. AMBRISENTAN [Suspect]
     Active Substance: AMBRISENTAN
     Indication: PULMONARY HYPERTENSION
     Dosage: 10 MG, QD
     Route: 065
     Dates: start: 20081230, end: 201806
  9. MUCINEX [Concomitant]
     Active Substance: GUAIFENESIN
  10. REVATIO [Concomitant]
     Active Substance: SILDENAFIL CITRATE
  11. ASPIRIN                            /00002701/ [Concomitant]
     Active Substance: ASPIRIN
  12. CYANOCOBALAMIN. [Concomitant]
     Active Substance: CYANOCOBALAMIN
  13. ONDANSETRON [Concomitant]
     Active Substance: ONDANSETRON
  14. QUINAPRIL. [Concomitant]
     Active Substance: QUINAPRIL
  15. IPRATROPIUM [Concomitant]
     Active Substance: IPRATROPIUM
  16. AROMASIN [Concomitant]
     Active Substance: EXEMESTANE
  17. ASTELIN                            /00884002/ [Concomitant]
  18. HYDROCODONE BITARTRATE AND ACETAMINOPHEN [Concomitant]
     Active Substance: ACETAMINOPHEN\HYDROCODONE BITARTRATE
  19. IPRATROPIUM W/SALBUTAMOL [Concomitant]
  20. VITAMINS WITH MINERALS [Concomitant]
     Active Substance: MINERALS\VITAMINS
  21. JANUVIA [Concomitant]
     Active Substance: SITAGLIPTIN PHOSPHATE

REACTIONS (2)
  - Postoperative thrombosis [Fatal]
  - Gallbladder operation [Unknown]
